FAERS Safety Report 16710203 (Version 4)
Quarter: 2019Q4

REPORT INFORMATION
  Report Type: Report from Study
  Country: US (occurrence: US)
  Receive Date: 20190816
  Receipt Date: 20191220
  Transmission Date: 20200122
  Serious: Yes (Death, Hospitalization, Other)
  Sender: FDA-Public Use
  Company Number: US-AMGEN-USASP2019130571

PATIENT
  Age: 73 Year
  Sex: Female
  Weight: 46.71 kg

DRUGS (33)
  1. MIRALAX [Concomitant]
     Active Substance: POLYETHYLENE GLYCOL 3350
     Dosage: UNK UNK, AS NECESSARY
  2. RESTORIL [CHLORMEZANONE] [Concomitant]
     Active Substance: CHLORMEZANONE
     Dosage: UNK UNK, AS NECESSARY
  3. IBUPROFEN. [Concomitant]
     Active Substance: IBUPROFEN
     Dosage: 800 MILLIGRAM, TID AS NEEDED, NOT MORE THAN 4 CONSECUTIVE DAYS
     Route: 048
     Dates: start: 20190213
  4. TURMERIC [CURCUMA LONGA ROOT] [Concomitant]
     Dosage: 500 MILLIGRAM, QD
     Route: 048
     Dates: start: 20170206
  5. EVENITY [Suspect]
     Active Substance: ROMOSOZUMAB-AQQG
     Indication: OSTEOPOROSIS
     Dosage: UNK
     Route: 065
     Dates: start: 2019
  6. BENADRYL [Concomitant]
     Active Substance: DIPHENHYDRAMINE HYDROCHLORIDE
     Dosage: 25 MILLIGRAM, 2 CAPSULES DAILY
     Route: 048
     Dates: start: 20150701
  7. ANCEF [Concomitant]
     Active Substance: CEFAZOLIN SODIUM
     Dosage: 1 GRAM, Q8H
     Route: 042
  8. LISINOPRIL. [Concomitant]
     Active Substance: LISINOPRIL
     Dosage: 40 MILLIGRAM (ONE TABLET), QD
     Route: 048
     Dates: start: 20190508
  9. ESTRACE [Concomitant]
     Active Substance: ESTRADIOL
     Dosage: 0.5 MILLIGRAM, (ONE TABLET) QD
     Route: 048
     Dates: start: 20190508
  10. TORADOL [Concomitant]
     Active Substance: KETOROLAC TROMETHAMINE
     Dosage: UNK UNK, AS NECESSARY
     Route: 042
  11. SYMBICORT [Concomitant]
     Active Substance: BUDESONIDE\FORMOTEROL FUMARATE DIHYDRATE
     Dosage: 160 MCG-4.5MCG/ACTUATION HFA AEROSOL BID
     Route: 048
     Dates: start: 20190717
  12. TRAMADOL. [Concomitant]
     Active Substance: TRAMADOL
     Dosage: 1 TAB (50 MILLIGRAM) TWICE A DAY AS NEEDED (PRN)
     Route: 048
     Dates: start: 20190508
  13. TRIAMCINOLONE ACETONIDE. [Concomitant]
     Active Substance: TRIAMCINOLONE ACETONIDE
     Dosage: 1 GRAM APPLY ON THE SKIN AS DIRECTED
     Route: 061
     Dates: start: 20160927
  14. NORMAL SALINE [Concomitant]
     Active Substance: SODIUM CHLORIDE
     Dosage: 80CC/HOUR
  15. COLACE [Concomitant]
     Active Substance: DOCUSATE SODIUM
     Dosage: 100 MILLIGRAM, BID
  16. LOVENOX [Concomitant]
     Active Substance: ENOXAPARIN SODIUM
     Dosage: 30 MILLIGRAM, AT BEDTIME
     Route: 058
  17. TYLENOL [Concomitant]
     Active Substance: ACETAMINOPHEN
     Dosage: UNK UNK, AS NECESSARY
  18. CELEXA [CELECOXIB] [Concomitant]
     Active Substance: CELECOXIB
     Dosage: 20 MILLIGRAM, QD
  19. MORPHINE [Concomitant]
     Active Substance: MORPHINE
     Dosage: UNK UNK, AS NECESSARY
  20. LEXAPRO [Concomitant]
     Active Substance: ESCITALOPRAM OXALATE
     Dosage: 20 MILLIGRAM (ONE TABLET), QD
     Route: 048
     Dates: start: 20190508
  21. PREDNISONE. [Concomitant]
     Active Substance: PREDNISONE
     Dosage: 10MG,QD AND AS DIRECTED,4TABS FOR 3DAYS,3TAB FOR 3DAYS,2TAB FOR 3DAYS,1TAB FOR 2DAYS,5TAB FOR 2DAYS
     Route: 048
     Dates: start: 20170906
  22. VENTOLIN [Concomitant]
     Active Substance: ALBUTEROL SULFATE
     Dosage: 1-2 PUFF INHALE FOUR TIMIAS A DAY(QID)
     Dates: start: 20190508
  23. AMLODIPINE [Concomitant]
     Active Substance: AMLODIPINE BESYLATE
     Dosage: 5 MILLIGRAM,(ONE TABLET) QD
     Route: 048
     Dates: start: 20190508
  24. LASIX [Concomitant]
     Active Substance: FUROSEMIDE
     Dosage: 20 MILLIGRAM, 2 TABLET BY MOUTH IN THE MORNING AS NEEDED (PRN)
     Route: 048
     Dates: start: 20180423
  25. DILTIAZEM. [Concomitant]
     Active Substance: DILTIAZEM
     Dosage: 180 MILLIGRAM, QD
     Route: 048
     Dates: start: 20171220
  26. ALBUTEROL SULFATE. [Concomitant]
     Active Substance: ALBUTEROL SULFATE
     Dosage: LJSE ONE VIAL IN NEBULIZER ONCE DAILY AS NEEDED
     Dates: start: 20171130
  27. OXYCODONE [Concomitant]
     Active Substance: OXYCODONE
     Dosage: UNK UNK, AS NECESSARY
  28. SENOKOT [Concomitant]
     Active Substance: SENNOSIDES
     Dosage: UNK UNK, AS NECESSARY
  29. DULCOLAX (BISACODYL) [Concomitant]
     Active Substance: BISACODYL
     Dosage: 10 MILLIGRAMX1
     Route: 054
  30. MAGNESIUM HYDROXIDE. [Concomitant]
     Active Substance: MAGNESIUM HYDROXIDE
     Dosage: X1
  31. DUONEB [Concomitant]
     Active Substance: ALBUTEROL SULFATE\IPRATROPIUM BROMIDE
     Dosage: UNK UNK, AS NECESSARY
  32. ZOFRAN [Concomitant]
     Active Substance: ONDANSETRON HYDROCHLORIDE
     Dosage: UNK UNK, AS NECESSARY
  33. IPRATROPIUM/ALBUTEROL [Concomitant]
     Active Substance: ALBUTEROL\IPRATROPIUM
     Dosage: 1 UNIT INHALE AS DIRECTED AS NEEDED (PRN)
     Dates: start: 20181102

REACTIONS (7)
  - Acute kidney injury [Unknown]
  - Death [Fatal]
  - Acidosis [Unknown]
  - Depressed level of consciousness [Unknown]
  - Hyperkalaemia [Unknown]
  - Hip fracture [Unknown]
  - Fall [Unknown]

NARRATIVE: CASE EVENT DATE: 201908
